FAERS Safety Report 25303776 (Version 1)
Quarter: 2025Q2

REPORT INFORMATION
  Report Type: Spontaneous
  Country: IN (occurrence: IN)
  Receive Date: 20250513
  Receipt Date: 20250513
  Transmission Date: 20250716
  Serious: Yes (Other)
  Sender: AMNEAL
  Company Number: IN-AMNEAL PHARMACEUTICALS-2025-AMRX-01757

PATIENT
  Age: 45 Year
  Sex: Male

DRUGS (1)
  1. ATROPINE SULFATE [Suspect]
     Active Substance: ATROPINE SULFATE
     Indication: Chemical poisoning
     Route: 065

REACTIONS (4)
  - Hallucination, auditory [Unknown]
  - Hallucination, visual [Unknown]
  - Agitation [Unknown]
  - Anxiety [Unknown]
